FAERS Safety Report 9631991 (Version 1)
Quarter: 2013Q4

REPORT INFORMATION
  Report Type: Spontaneous
  Country: FI (occurrence: None)
  Receive Date: 20131016
  Receipt Date: 20131016
  Transmission Date: 20140711
  Serious: Yes (Hospitalization)
  Sender: FDA-Public Use
  Company Number: ENTC2013-0363

PATIENT
  Age: 69 Year
  Sex: 0

DRUGS (8)
  1. STALEVO (LEVODOPA, CARBIDOPA, ENTACAPONE) [Suspect]
     Indication: PARKINSON^S DISEASE
     Dosage: (3 IN 1 D)
     Route: 048
     Dates: start: 20120914
  2. LITO [Concomitant]
  3. SOMAC [Concomitant]
  4. NITRO [Concomitant]
  5. LINATIL COMP [Concomitant]
  6. THYROXIN [Concomitant]
  7. THYROXIN [Concomitant]
  8. MOVICOL PLAIN [Concomitant]

REACTIONS (2)
  - Mania [None]
  - Bipolar disorder [None]
